FAERS Safety Report 19662331 (Version 3)
Quarter: 2021Q3

REPORT INFORMATION
  Report Type: Spontaneous
  Country: DE (occurrence: DE)
  Receive Date: 20210805
  Receipt Date: 20210904
  Transmission Date: 20211014
  Serious: Yes (Hospitalization, Other)
  Sender: FDA-Public Use
  Company Number: NVSC2021DE172634

PATIENT
  Age: 52 Year
  Sex: Female
  Weight: 62 kg

DRUGS (12)
  1. DEKRISTOL [Concomitant]
     Active Substance: CHOLECALCIFEROL
     Indication: PRODUCT USED FOR UNKNOWN INDICATION
     Dosage: 20000 IU, QW
     Route: 065
  2. IBUPROFEN. [Concomitant]
     Active Substance: IBUPROFEN
     Indication: PRODUCT USED FOR UNKNOWN INDICATION
     Dosage: UNK
     Route: 065
  3. DOMPERIDONE [Concomitant]
     Active Substance: DOMPERIDONE
     Indication: PRODUCT USED FOR UNKNOWN INDICATION
     Dosage: UNK
     Route: 065
  4. SALBUTAMOL [Concomitant]
     Active Substance: ALBUTEROL
     Indication: PRODUCT USED FOR UNKNOWN INDICATION
     Dosage: UNK
     Route: 065
  5. VOLON A [Concomitant]
     Dosage: UNK (INTO SPINAL FLUID)
     Route: 065
  6. PANTOPRAZOL [Suspect]
     Active Substance: PANTOPRAZOLE SODIUM
     Indication: PRODUCT USED FOR UNKNOWN INDICATION
     Dosage: 40 MG
     Route: 065
  7. CORTISONE [Suspect]
     Active Substance: CORTISONE
     Indication: PRODUCT USED FOR UNKNOWN INDICATION
     Dosage: ALTERNATIVE TO VOLON A
     Route: 065
     Dates: start: 20200810, end: 20200813
  8. CANNABIS SATIVA [Concomitant]
     Active Substance: CANNABIS SATIVA FLOWERING TOP
     Indication: PRODUCT USED FOR UNKNOWN INDICATION
     Dosage: UNK (FLOWER) (SEVERAL TIMES PER DAY AND IN THE NIGHT)
     Route: 065
  9. VOLON A [Concomitant]
     Indication: PRODUCT USED FOR UNKNOWN INDICATION
     Dosage: 100 MG, Q3MO
     Route: 065
     Dates: start: 20200409
  10. NOVALGIN [Concomitant]
     Indication: PRODUCT USED FOR UNKNOWN INDICATION
     Dosage: UNK
     Route: 065
  11. OXYCODONE [Concomitant]
     Active Substance: OXYCODONE
     Indication: PRODUCT USED FOR UNKNOWN INDICATION
     Dosage: 5 MG, PRN (UP TO 4 TABLETS DAILY)
     Route: 065
  12. OXYCODONE [Concomitant]
     Active Substance: OXYCODONE
     Dosage: 5 MG AS NEEDED (UP TO 4 TABLETS DAILY) AS REQUIRED
     Route: 065

REACTIONS (48)
  - Mobility decreased [Recovered/Resolved]
  - Alopecia [Recovering/Resolving]
  - Platelet count decreased [Not Recovered/Not Resolved]
  - Urine odour abnormal [Recovering/Resolving]
  - Fluid retention [Not Recovered/Not Resolved]
  - Throat irritation [Recovered/Resolved]
  - Asthenia [Recovered/Resolved]
  - Gastritis erosive [Recovered/Resolved]
  - Cushing^s syndrome [Not Recovered/Not Resolved]
  - Seborrhoeic keratosis [Unknown]
  - Pain in extremity [Recovered/Resolved]
  - Dry skin [Not Recovered/Not Resolved]
  - Gamma-glutamyltransferase increased [Recovering/Resolving]
  - Blood pressure increased [Not Recovered/Not Resolved]
  - Blood cholesterol increased [Recovered/Resolved]
  - Periorbital swelling [Not Recovered/Not Resolved]
  - Calcinosis [Recovered/Resolved]
  - Bone pain [Recovered/Resolved]
  - Initial insomnia [Recovered/Resolved]
  - Dizziness [Recovered/Resolved]
  - Arthralgia [Recovered/Resolved]
  - Paraesthesia [Recovered/Resolved]
  - Platelet count increased [Not Recovered/Not Resolved]
  - Endometrial thickening [Not Recovered/Not Resolved]
  - Platelet count increased [Recovering/Resolving]
  - Weight increased [Not Recovered/Not Resolved]
  - Diarrhoea [Recovered/Resolved]
  - Urinary tract infection bacterial [Recovered/Resolved]
  - Cystitis noninfective [Not Recovered/Not Resolved]
  - Muscle spasticity [Recovered/Resolved]
  - Muscular weakness [Recovered/Resolved]
  - Bone density increased [Not Recovered/Not Resolved]
  - Rash [Recovered/Resolved]
  - Migraine [Unknown]
  - Chronic gastritis [Not Recovered/Not Resolved]
  - Irritability [Not Recovered/Not Resolved]
  - Vitamin D decreased [Not Recovered/Not Resolved]
  - Injection site erythema [Recovered/Resolved]
  - Cataract [Not Recovered/Not Resolved]
  - Uterine enlargement [Recovering/Resolving]
  - SARS-CoV-2 antibody test negative [Not Recovered/Not Resolved]
  - Insomnia [Recovered/Resolved]
  - Injection site warmth [Recovered/Resolved]
  - Body fat disorder [Not Recovered/Not Resolved]
  - Osteoporosis [Unknown]
  - Gait disturbance [Not Recovered/Not Resolved]
  - Wound [Recovering/Resolving]
  - B-lymphocyte count decreased [Not Recovered/Not Resolved]

NARRATIVE: CASE EVENT DATE: 20180523
